FAERS Safety Report 5522200-X (Version None)
Quarter: 2007Q4

REPORT INFORMATION
  Report Type: 
  Country: None (occurrence: None)
  Receive Date: 20071120
  Receipt Date: 20071115
  Transmission Date: 20080405
  Serious: Yes (Hospitalization)
  Sender: FDA-Public Use
  Company Number: B0495509A

PATIENT
  Age: 83 Year
  Sex: Female

DRUGS (1)
  1. VALTREX [Suspect]
     Indication: HERPES ZOSTER
     Dosage: 1000MG THREE TIMES PER DAY
     Route: 048
     Dates: start: 20071107, end: 20071111

REACTIONS (3)
  - COORDINATION ABNORMAL [None]
  - DYSARTHRIA [None]
  - RENAL FAILURE ACUTE [None]
